FAERS Safety Report 6803386-3 (Version None)
Quarter: 2010Q2

REPORT INFORMATION
  Report Type: 
  Country: None (occurrence: None)
  Receive Date: 20100628
  Receipt Date: 20100616
  Transmission Date: 20101027
  Serious: Yes (Other)
  Sender: FDA-Public Use
  Company Number: CH-PFIZER INC-2010038809

PATIENT
  Age: 21 Year
  Sex: Male
  Weight: 72 kg

DRUGS (3)
  1. DALACIN [Suspect]
     Indication: ACNE
     Dosage: UNK
     Route: 061
     Dates: start: 20050101, end: 20050101
  2. DALACIN [Suspect]
     Dosage: UNK
     Route: 061
     Dates: start: 20090101, end: 20090101
  3. DALACIN [Suspect]
     Route: 061

REACTIONS (5)
  - DERMATITIS ALLERGIC [None]
  - ERYTHEMA [None]
  - EYE SWELLING [None]
  - HYPERSENSITIVITY [None]
  - SKIN EXFOLIATION [None]
